FAERS Safety Report 9757297 (Version 2)
Quarter: 2013Q4

REPORT INFORMATION
  Report Type: Spontaneous
  Country: JP (occurrence: JP)
  Receive Date: 20131214
  Receipt Date: 20131231
  Transmission Date: 20140711
  Serious: Yes (Other)
  Sender: FDA-Public Use
  Company Number: JP-ROCHE-1319710

PATIENT
  Age: 35 Year
  Sex: Female

DRUGS (6)
  1. XOLAIR [Suspect]
     Indication: ASTHMA
     Route: 058
     Dates: start: 20131105
  2. HOKUNALIN [Concomitant]
     Route: 065
     Dates: start: 20130819
  3. ADOAIR [Concomitant]
     Route: 065
     Dates: start: 201309
  4. PREDONINE [Concomitant]
     Route: 065
     Dates: start: 20131007, end: 20131119
  5. SINGULAIR [Concomitant]
     Route: 065
     Dates: start: 20130610
  6. THEOLONG [Concomitant]
     Route: 065
     Dates: start: 20130819

REACTIONS (1)
  - Pneumonia mycoplasmal [Recovered/Resolved]
